FAERS Safety Report 15631199 (Version 1)
Quarter: 2018Q4

REPORT INFORMATION
  Report Type: Spontaneous
  Country: US (occurrence: US)
  Receive Date: 20181112
  Receipt Date: 20181112
  Transmission Date: 20190205
  Serious: No
  Sender: FDA-Public Use
  Company Number: None

PATIENT
  Age: 56 Year
  Sex: Female

DRUGS (1)
  1. HUMIRA [Suspect]
     Active Substance: ADALIMUMAB
     Indication: PSORIASIS
     Route: 058
     Dates: start: 20181005

REACTIONS (7)
  - Pyrexia [None]
  - Diarrhoea [None]
  - Chills [None]
  - Fatigue [None]
  - Decreased appetite [None]
  - Inappropriate schedule of product administration [None]
  - Viral infection [None]

NARRATIVE: CASE EVENT DATE: 20181015
